FAERS Safety Report 12861977 (Version 1)
Quarter: 2016Q4

REPORT INFORMATION
  Report Type: Spontaneous
  Country: US (occurrence: US)
  Receive Date: 20161019
  Receipt Date: 20161019
  Transmission Date: 20170207
  Serious: No
  Sender: FDA-Public Use
  Company Number: US-TAKEDA-2016MPI008950

PATIENT
  Sex: Female
  Weight: 135.15 kg

DRUGS (1)
  1. NINLARO [Suspect]
     Active Substance: IXAZOMIB
     Indication: PLASMA CELL MYELOMA
     Dosage: 3 MG, UNK
     Route: 048
     Dates: start: 20160809

REACTIONS (5)
  - Musculoskeletal chest pain [Unknown]
  - Nausea [Unknown]
  - Rib fracture [Unknown]
  - Malaise [Unknown]
  - Back pain [Unknown]
